FAERS Safety Report 5980051-6 (Version None)
Quarter: 2008Q4

REPORT INFORMATION
  Report Type: 
  Country: None (occurrence: None)
  Receive Date: 20081205
  Receipt Date: 20081126
  Transmission Date: 20090506
  Serious: Yes (Other)
  Sender: FDA-Public Use
  Company Number: FR-JNJFOC-20081200445

PATIENT
  Age: 57 Year
  Sex: Female
  Weight: 51 kg

DRUGS (7)
  1. REMICADE [Suspect]
     Route: 042
  2. REMICADE [Suspect]
     Route: 042
  3. REMICADE [Suspect]
     Route: 042
  4. REMICADE [Suspect]
     Indication: DRUG USE FOR UNKNOWN INDICATION
     Route: 042
  5. METHOJECT [Concomitant]
     Indication: PSORIATIC ARTHROPATHY
     Route: 058
  6. CEBUTID [Concomitant]
     Indication: PSORIATIC ARTHROPATHY
  7. DIALGIREX [Concomitant]
     Indication: PAIN
     Route: 048

REACTIONS (3)
  - ASTHENIA [None]
  - NAUSEA [None]
  - VISUAL ACUITY REDUCED [None]
